FAERS Safety Report 7383102-X (Version None)
Quarter: 2011Q1

REPORT INFORMATION
  Report Type: 
  Country: None (occurrence: None)
  Receive Date: 20110330
  Receipt Date: 20110316
  Transmission Date: 20110831
  Serious: Yes (Life-Threatening, Other)
  Sender: FDA-Public Use
  Company Number: FR-JNJFOC-20110302799

PATIENT
  Age: 8 Year
  Sex: Male
  Weight: 33 kg

DRUGS (10)
  1. REMICADE [Suspect]
     Indication: COLITIS
     Dosage: TOTAL 4 DOSES
     Route: 042
  2. REMICADE [Suspect]
     Indication: CROHN'S DISEASE
     Route: 042
  3. REMICADE [Suspect]
     Route: 042
  4. REMICADE [Suspect]
     Dosage: DOSE INCREASED; TOTAL 8 INFUSIONS
     Route: 042
  5. REMICADE [Suspect]
     Dosage: TOTAL 4 DOSES
     Route: 042
  6. HYDROCORTISONE HEMISUCCINATE [Concomitant]
     Indication: PREMEDICATION
  7. ROVALCYTE [Concomitant]
     Dosage: 250 MG 2DF
  8. REMICADE [Suspect]
     Dosage: DOSE INCREASED; TOTAL 8 INFUSIONS
     Route: 042
  9. CALTRATE D [Concomitant]
  10. POLARAMINE [Concomitant]
     Indication: PREMEDICATION

REACTIONS (2)
  - ANAPHYLACTIC SHOCK [None]
  - INFUSION RELATED REACTION [None]
